FAERS Safety Report 4470025-9 (Version None)
Quarter: 2004Q3

REPORT INFORMATION
  Report Type: 
  Country: None (occurrence: None)
  Receive Date: 20040920
  Receipt Date: 20040728
  Transmission Date: 20050211
  Serious: No
  Sender: FDA-Public Use
  Company Number: PHEH2004US08175

PATIENT
  Age: 40 Year
  Sex: Female

DRUGS (4)
  1. ZOMETA [Suspect]
     Indication: METASTASES TO BONE
     Dosage: 4 MG, QMO, INTRAVENOUS
     Route: 042
     Dates: start: 20011009
  2. TAXOL [Concomitant]
  3. DECADRON [Concomitant]
  4. TRASTUZUMAB (TRASTUZUMAB) [Concomitant]

REACTIONS (1)
  - PAIN IN JAW [None]
